FAERS Safety Report 8149251 (Version 2)
Quarter: 2013Q1

REPORT INFORMATION
  Report Type: Spontaneous
  Country: US (occurrence: US)
  Receive Date: 20110922
  Receipt Date: 20130215
  Transmission Date: 20140127
  Serious: Yes (Other)
  Sender: FDA-Public Use
  Company Number: US-ASTRAZENECA-2011SE12590

PATIENT
  Age: 567 Month
  Sex: Male

DRUGS (9)
  1. SEROQUEL [Suspect]
     Route: 048
     Dates: start: 20080905
  2. SEROQUEL [Suspect]
     Route: 048
     Dates: start: 20080923
  3. SEROQUEL [Suspect]
     Route: 048
     Dates: start: 20081027
  4. SEROQUEL [Suspect]
     Route: 048
     Dates: start: 20081027
  5. CYCLOBENZAPRINE [Concomitant]
     Dates: start: 20080923
  6. DICLOFENAC SOD [Concomitant]
     Dates: start: 20080923
  7. TRAMADOL HCL [Concomitant]
     Dates: start: 20081008
  8. HYDROCODON-ACETAMINOPH [Concomitant]
     Dates: start: 20081028
  9. DICYCLOMINE [Concomitant]
     Dates: start: 20080923

REACTIONS (3)
  - Pancreatitis [Unknown]
  - Diabetic coma [Unknown]
  - Type 2 diabetes mellitus [Unknown]
